FAERS Safety Report 9049456 (Version 1)
Quarter: 2013Q1

REPORT INFORMATION
  Report Type: Spontaneous
  Country: US (occurrence: US)
  Receive Date: 20130205
  Receipt Date: 20130205
  Transmission Date: 20140127
  Serious: Yes (Death)
  Sender: FDA-Public Use
  Company Number: US-GLAXOSMITHKLINE-A1006111A

PATIENT
  Sex: Male

DRUGS (1)
  1. VOTRIENT [Suspect]
     Indication: PRODUCT USED FOR UNKNOWN INDICATION
     Dosage: 200MG UNKNOWN
     Route: 048

REACTIONS (7)
  - Death [Fatal]
  - Fatigue [Unknown]
  - Dyspnoea [Unknown]
  - Cough [Unknown]
  - Asthenia [Unknown]
  - Decreased appetite [Unknown]
  - Insomnia [Unknown]
